FAERS Safety Report 11886223 (Version 1)
Quarter: 2016Q1

REPORT INFORMATION
  Report Type: Spontaneous
  Country: US (occurrence: US)
  Receive Date: 20160104
  Receipt Date: 20160104
  Transmission Date: 20160526
  Serious: No
  Sender: FDA-Public Use
  Company Number: US-BAYER-2016-000796

PATIENT
  Age: 94 Year
  Sex: Female

DRUGS (2)
  1. ALEVE [Suspect]
     Active Substance: NAPROXEN SODIUM
     Indication: PYREXIA
     Dosage: 1 DF, UNK
     Dates: start: 20160101, end: 20160102
  2. ALEVE [Suspect]
     Active Substance: NAPROXEN SODIUM
     Indication: INFLUENZA LIKE ILLNESS

REACTIONS (1)
  - Palpitations [None]

NARRATIVE: CASE EVENT DATE: 20160102
